FAERS Safety Report 4503775-6 (Version None)
Quarter: 2004Q4

REPORT INFORMATION
  Report Type: 
  Country: None (occurrence: None)
  Receive Date: 20041115
  Receipt Date: 20041029
  Transmission Date: 20050328
  Serious: Yes (Other)
  Sender: FDA-Public Use
  Company Number: FLUV00304003895

PATIENT
  Age: 72 Year
  Sex: Male

DRUGS (4)
  1. FLUVOXAMINE MALEATE [Suspect]
     Indication: PAIN
     Dosage: 25 MILLIGRAM(S)BID ORAL
     Route: 048
     Dates: start: 20041015, end: 20041018
  2. PLETAL [Concomitant]
  3. PREDNISOLONE [Concomitant]
  4. ASPIRIN [Concomitant]

REACTIONS (2)
  - ANURIA [None]
  - SHOCK [None]
